FAERS Safety Report 19040217 (Version 1)
Quarter: 2021Q1

REPORT INFORMATION
  Report Type: Spontaneous
  Country: NL (occurrence: NL)
  Receive Date: 20210323
  Receipt Date: 20210323
  Transmission Date: 20210420
  Serious: Yes (Hospitalization)
  Sender: FDA-Public Use
  Company Number: NL-TEVA-2021-NL-1892300

PATIENT
  Age: 65 Year
  Sex: Male
  Weight: 76 kg

DRUGS (14)
  1. CLOPIDOGREL TABLET   75MG / BRAND NAME NOT SPECIFIED [Concomitant]
     Active Substance: CLOPIDOGREL BISULFATE
     Dosage: 75 MG (MILLIGRAM)THERAPY START DATE:ASKED BUT UNKNOWN:THERAPY END DATE :ASKED BUT UNKNOWN
  2. PREGABALINE CAPSULE  75MG / BRAND NAME NOT SPECIFIED [Concomitant]
     Dosage: 75 MG (MILLIGRAM):THERAPY START DATE:ASKED BUT UNKNOWN:THERAPY END DATE :ASKED BUT UNKNOWN
  3. ACETYLSALICYLZUUR TABLET  80MG / BRAND NAME NOT SPECIFIED [Concomitant]
     Active Substance: ASPIRIN
     Dosage: 80 MG (MILLIGRAM)THERAPY START DATE:ASKED BUT UNKNOWN:THERAPY END DATE :ASKED BUT UNKNOWN
  4. BIMATOPROST OOGDRUPPELS 0,1MG/ML / LUMIGAN OOGDRUPPELS 0,1MG/ML FLACON [Concomitant]
     Dosage: 0.1 MG / ML (MILLIGRAMS PER MILLILITER)THERAPY START DATE:ASKED BUT UNKNOWN:THERAPY END DATE :ASKED
  5. NITROGLYCERINE SPRAY SUBLING. 0,4MG/DO / NITROLINGUAL OROMUCOSALE SPRA [Concomitant]
     Dosage: SPRAY, 0.4 MG / DOSE (MILLIGRAMS PER DOSE):THERAPY START DATE:ASKED BUT UNKNOWN:THERAPY END DATE :AS
  6. METOPROLOL TABLET MGA  50MG (SUCCINAAT) / BRAND NAME NOT SPECIFIED [Concomitant]
     Active Substance: METOPROLOL SUCCINATE
     Dosage: 50 MG (MILLIGRAM)
  7. COLECALCIFEROL TABLET   800IE / BRAND NAME NOT SPECIFIED [Concomitant]
     Dosage: 800 UNITS
  8. GLICLAZIDE TABLET MGA 80MG / BRAND NAME NOT SPECIFIED [Concomitant]
     Dosage: 80 MG (MILLIGRAM):THERAPY START DATE:ASKED BUT UNKNOWN:THERAPY END DATE :ASKED BUT UNKNOWN
  9. CYANOCOBALAMINE TABLET 1000UG / BRAND NAME NOT SPECIFIED [Concomitant]
     Active Substance: CYANOCOBALAMIN
     Dosage: 1000 UG (MICROGRAM)THERAPY START DATE:ASKED BUT UNKNOWN:THERAPY END DATE :ASKED BUT UNKNOWN
  10. TIMOLOL/DORZOLAMIDE OOGDRUPPELS 5/20MG/ML / DUALKOPT OOGDRUPPELS FLACO [Concomitant]
     Dosage: EYE DROPS, 5/20 MG / ML (MILLIGRAMS PER MILLILITER):THERAPY START DATE:ASKED BUT UNKNOWN:THERAPY END
  11. LISINOPRIL TABLET  2,5MG / BRAND NAME NOT SPECIFIED [Concomitant]
     Dosage: 2,5 MG (MILLIGRAM)THERAPY START DATE:ASKED BUT UNKNOWN:THERAPY END DATE :ASKED BUT UNKNOWN
  12. NICOTINE PLEISTER  7MG/24UUR (NICOTINEL/NICOPATCH) / NICOTINELL TTS 10 [Concomitant]
     Dosage: PATCH, 7 MG (MILLIGRAMS) PER 24 HOURSTHERAPY START DATE:ASKED BUT UNKNOWN:THERAPY END DATE :ASKED BU
  13. PANTOPRAZOL TABLET MSR 40MG / BRAND NAME NOT SPECIFIED [Suspect]
     Active Substance: PANTOPRAZOLE
     Indication: PROPHYLAXIS
     Dosage: 40 MILLIGRAM DAILY; 1DD1
     Dates: start: 20210204, end: 20210225
  14. ATORVASTATINE TABLET 80MG / BRAND NAME NOT SPECIFIED [Concomitant]
     Dosage: 80 MG (MILLIGRAM)THERAPY START DATE:ASKED BUT UNKNOWN:THERAPY END DATE :ASKED BUT UNKNOWN

REACTIONS (3)
  - Hypomagnesaemia [Recovering/Resolving]
  - Hypocalcaemia [Recovering/Resolving]
  - Hypokalaemia [Recovering/Resolving]

NARRATIVE: CASE EVENT DATE: 20210224
